FAERS Safety Report 20590560 (Version 3)
Quarter: 2022Q3

REPORT INFORMATION
  Report Type: Spontaneous
  Country: None (occurrence: IT)
  Receive Date: 20220314
  Receipt Date: 20220718
  Transmission Date: 20221027
  Serious: Yes (Death, Life-Threatening, Hospitalization, Other)
  Sender: FDA-Public Use
  Company Number: IT-Nova Laboratories Limited-2126756

PATIENT
  Age: 17 Year
  Sex: Male

DRUGS (13)
  1. PURIXAN [Suspect]
     Active Substance: MERCAPTOPURINE
     Indication: T-cell type acute leukaemia
     Route: 048
  2. METHOTREXATE [Suspect]
     Active Substance: METHOTREXATE
     Route: 048
  3. ANAKINRA [Suspect]
     Active Substance: ANAKINRA
     Route: 058
  4. ANAKINRA [Suspect]
     Active Substance: ANAKINRA
     Route: 058
  5. PEGASPARGASE [Suspect]
     Active Substance: PEGASPARGASE
  6. DOXORUBICIN HYDROCHLORIDE [Suspect]
     Active Substance: DOXORUBICIN HYDROCHLORIDE
  7. DOXORUBICIN [Suspect]
     Active Substance: DOXORUBICIN
  8. FLUDARABINE [Suspect]
     Active Substance: FLUDARABINE PHOSPHATE
  9. DEXAMETHASONE [Suspect]
     Active Substance: DEXAMETHASONE
  10. CYTARABINE [Suspect]
     Active Substance: CYTARABINE
  11. BORTEZOMIB [Suspect]
     Active Substance: BORTEZOMIB
  12. VINCRISTINE [Suspect]
     Active Substance: VINCRISTINE
  13. FILGRASTIM [Suspect]
     Active Substance: FILGRASTIM

REACTIONS (8)
  - Disease recurrence [Unknown]
  - Cystitis haemorrhagic [Fatal]
  - Cardiac failure [Fatal]
  - Renal failure [Fatal]
  - Venoocclusive disease [Fatal]
  - Cytomegalovirus hepatitis [Fatal]
  - Cytopenia [Fatal]
  - Sepsis [Fatal]
